FAERS Safety Report 11199957 (Version 1)
Quarter: 2015Q2

REPORT INFORMATION
  Report Type: Spontaneous
  Country: US (occurrence: None)
  Receive Date: 20150617
  Receipt Date: 20150617
  Transmission Date: 20150821
  Serious: No
  Sender: FDA-Public Use
  Company Number: None

PATIENT
  Age: 60 Year
  Sex: Female
  Weight: 81.65 kg

DRUGS (22)
  1. MOBIC [Concomitant]
     Active Substance: MELOXICAM
  2. XANAX [Concomitant]
     Active Substance: ALPRAZOLAM
  3. MUCINEX DM [Concomitant]
     Active Substance: DEXTROMETHORPHAN HYDROBROMIDE\GUAIFENESIN
  4. VITAMIN D3 [Concomitant]
     Active Substance: CHOLECALCIFEROL
  5. VITAMIN E [Concomitant]
     Active Substance: .ALPHA.-TOCOPHEROL
  6. FLEXERIL [Concomitant]
     Active Substance: CYCLOBENZAPRINE HYDROCHLORIDE
  7. MELATONIN [Concomitant]
     Active Substance: MELATONIN
  8. BENADRYL [Concomitant]
     Active Substance: DIPHENHYDRAMINE HYDROCHLORIDE
  9. WOMEN^S 50+ MULTIVITAMIN [Concomitant]
  10. RANITIDINE [Concomitant]
     Active Substance: RANITIDINE\RANITIDINE HYDROCHLORIDE
  11. ESTROG/METHYL TABLET 1.25/2.5 [Suspect]
     Active Substance: ESTROGENS\METHYLTESTOSTERONE
     Indication: NIGHT SWEATS
     Route: 048
     Dates: start: 20141209, end: 20150616
  12. ESTROG/METHYL TABLET 1.25/2.5 [Suspect]
     Active Substance: ESTROGENS\METHYLTESTOSTERONE
     Indication: HOT FLUSH
     Route: 048
     Dates: start: 20141209, end: 20150616
  13. DIOVAN [Concomitant]
     Active Substance: VALSARTAN
  14. NASACORT AQ NASAL SPRAY [Concomitant]
  15. TRAZODONE [Concomitant]
     Active Substance: TRAZODONE HYDROCHLORIDE
  16. VIT B [Concomitant]
     Active Substance: VITAMINS
  17. LORATADINE. [Concomitant]
     Active Substance: LORATADINE
  18. VIT A [Concomitant]
  19. VITAMIN C [Concomitant]
     Active Substance: ASCORBIC ACID
  20. PROAIR HFA [Concomitant]
     Active Substance: ALBUTEROL SULFATE
  21. LEXAPRO [Concomitant]
     Active Substance: ESCITALOPRAM OXALATE
  22. ADDERALL [Concomitant]
     Active Substance: AMPHETAMINE ASPARTATE\AMPHETAMINE SULFATE\DEXTROAMPHETAMINE SACCHARATE\DEXTROAMPHETAMINE SULFATE

REACTIONS (5)
  - Night sweats [None]
  - Product substitution issue [None]
  - Hot flush [None]
  - Drug ineffective [None]
  - Product quality issue [None]

NARRATIVE: CASE EVENT DATE: 20150612
